FAERS Safety Report 5328168-3 (Version None)
Quarter: 2007Q2

REPORT INFORMATION
  Report Type: 
  Country: None (occurrence: None)
  Receive Date: 20070517
  Receipt Date: 20070510
  Transmission Date: 20071010
  Serious: Yes (Hospitalization)
  Sender: FDA-Public Use
  Company Number: US-GENENTECH-236191

PATIENT
  Sex: Male
  Weight: 67.5 kg

DRUGS (10)
  1. BEVACIZUMAB [Suspect]
     Indication: COLORECTAL CANCER METASTATIC
     Dosage: 5 MG/KG, Q2W
     Route: 042
     Dates: start: 20061018, end: 20070119
  2. CETUXIMAB [Suspect]
     Indication: COLORECTAL CANCER METASTATIC
     Dosage: 250 MG/M2, 1/WEEK
     Route: 042
     Dates: start: 20061018, end: 20070126
  3. FLUOROURACIL [Suspect]
     Indication: COLORECTAL CANCER METASTATIC
     Dosage: 300 MG, UNK
     Route: 040
     Dates: start: 20061018, end: 20070119
  4. FLUOROURACIL [Suspect]
     Dosage: 700 MG/M2, Q2W
     Route: 042
  5. LEUCOVORIN CALCIUM [Suspect]
     Indication: COLORECTAL CANCER METASTATIC
     Dosage: 400 MG/M2, Q2W
     Route: 042
     Dates: start: 20061018, end: 20070119
  6. PERCOCET [Concomitant]
     Indication: PAIN
     Dosage: UNK, Q4H
     Route: 048
     Dates: start: 20070202
  7. LOVENOX [Concomitant]
     Indication: PULMONARY EMBOLISM
     Dosage: 100 MG, QD
     Route: 058
     Dates: start: 20070110
  8. COUMADIN [Concomitant]
     Indication: PULMONARY EMBOLISM
     Dosage: 2 MG, QD
     Route: 048
     Dates: start: 20070123
  9. OXYCONTIN [Concomitant]
     Indication: PAIN
     Dosage: 10 MG, BID
     Route: 048
     Dates: start: 20070116
  10. PREVACID [Concomitant]
     Indication: GASTROOESOPHAGEAL REFLUX DISEASE
     Dosage: 30 MG, QD
     Route: 048
     Dates: start: 20061117

REACTIONS (9)
  - BLOOD PRESSURE DECREASED [None]
  - BODY TEMPERATURE DECREASED [None]
  - CARDIOMEGALY [None]
  - CHEST PAIN [None]
  - FIBRIN D DIMER INCREASED [None]
  - LARGE INTESTINE PERFORATION [None]
  - ODYNOPHAGIA [None]
  - PNEUMATOSIS INTESTINALIS [None]
  - WHITE BLOOD CELL COUNT DECREASED [None]
